FAERS Safety Report 21629415 (Version 1)
Quarter: 2022Q4

REPORT INFORMATION
  Report Type: Spontaneous
  Country: CN (occurrence: CN)
  Receive Date: 20221122
  Receipt Date: 20221122
  Transmission Date: 20230113
  Serious: Yes (Other)
  Sender: FDA-Public Use
  Company Number: CN-002147023-NVSC2022CN261027

PATIENT
  Age: 3 Year
  Sex: Male

DRUGS (1)
  1. OXCARBAZEPINE [Suspect]
     Active Substance: OXCARBAZEPINE
     Indication: Status epilepticus
     Dosage: UNK
     Route: 065

REACTIONS (2)
  - Status epilepticus [Unknown]
  - Condition aggravated [Unknown]
